FAERS Safety Report 6377089-6 (Version None)
Quarter: 2009Q3

REPORT INFORMATION
  Report Type: 
  Country: None (occurrence: None)
  Receive Date: 20090925
  Receipt Date: 20090916
  Transmission Date: 20100115
  Serious: No
  Sender: FDA-Public Use
  Company Number: US-B.I. PHARMACEUTICALS,INC./RIDGEFIELD-2009-BP-10905BP

PATIENT
  Sex: Female

DRUGS (5)
  1. COMBIVENT [Suspect]
     Indication: CHRONIC OBSTRUCTIVE PULMONARY DISEASE
     Dosage: 10 PUF
     Route: 055
     Dates: start: 20050101
  2. MOTRIN [Concomitant]
     Indication: ARTHRITIS
  3. DARVOCET [Concomitant]
     Indication: ARTHRITIS
  4. AMBIEN [Concomitant]
     Indication: SLEEP DISORDER
  5. XANAX [Concomitant]

REACTIONS (2)
  - DYSPNOEA [None]
  - OROPHARYNGEAL PAIN [None]
